FAERS Safety Report 17039800 (Version 1)
Quarter: 2019Q4

REPORT INFORMATION
  Report Type: Spontaneous
  Country: BR (occurrence: BR)
  Receive Date: 20191116
  Receipt Date: 20191116
  Transmission Date: 20200122
  Serious: Yes (Other)
  Sender: FDA-Public Use
  Company Number: BR-AMGEN-BRASP2019187849

PATIENT
  Age: 73 Year
  Sex: Female
  Weight: 53 kg

DRUGS (7)
  1. ARADOIS [Concomitant]
     Active Substance: LOSARTAN POTASSIUM
  2. ABLOK [Concomitant]
     Active Substance: ATENOLOL
  3. CALCIUM [Concomitant]
     Active Substance: CALCIUM
  4. PROLIA [Suspect]
     Active Substance: DENOSUMAB
     Indication: OSTEOPOROSIS
     Dosage: 60 MILLIGRAM PER MILLILITRE
     Route: 065
     Dates: start: 20171227
  5. PURAN [Concomitant]
     Active Substance: LEVOTHYROXINE SODIUM
  6. ANAFRANIL [Concomitant]
     Active Substance: CLOMIPRAMINE HYDROCHLORIDE
  7. ADDERA D3 [Concomitant]
     Active Substance: CHOLECALCIFEROL

REACTIONS (1)
  - Foot fracture [Unknown]

NARRATIVE: CASE EVENT DATE: 201910
